FAERS Safety Report 8559828 (Version 2)
Quarter: 2012Q4

REPORT INFORMATION
  Report Type: 
  Country: US (occurrence: US)
  Receive Date: 20120514
  Receipt Date: 20121004
  Transmission Date: 20130627
  Serious: Yes (Other)
  Sender: FDA-Public Use
  Company Number: US-US-EMD SERONO, INC.-7130781

PATIENT
  Age: 42 None
  Sex: Female

DRUGS (8)
  1. REBIF [Suspect]
     Indication: MULTIPLE SCLEROSIS
     Route: 058
     Dates: start: 20090422
  2. SOLUMEDROL [Concomitant]
     Indication: PROPHYLAXIS
  3. PROACTIV [Concomitant]
     Indication: ACNE
  4. CLONAZEPAM [Concomitant]
     Indication: ENERGY INCREASED
  5. SYNTHETIC MARIJUANA [Concomitant]
     Indication: ENERGY INCREASED
  6. EFFEXOR [Concomitant]
     Indication: DEPRESSION
  7. IMITREX [Concomitant]
     Indication: HEADACHE
  8. PERCOCET [Concomitant]
     Indication: HEADACHE

REACTIONS (6)
  - Pneumonia [Recovered/Resolved]
  - Influenza [Unknown]
  - Gastroenteritis viral [Unknown]
  - Dizziness [Unknown]
  - Vitamin D deficiency [Unknown]
  - Multiple sclerosis relapse [Unknown]
